FAERS Safety Report 8182452-7 (Version None)
Quarter: 2012Q1

REPORT INFORMATION
  Report Type: 
  Country: None (occurrence: None)
  Receive Date: 20120305
  Receipt Date: 20120224
  Transmission Date: 20120608
  Serious: Yes (Hospitalization)
  Sender: FDA-Public Use
  Company Number: US-BIOGENIDEC-2012BI004484

PATIENT
  Age: 39 Year
  Sex: Female
  Weight: 84 kg

DRUGS (5)
  1. BACLOFEN [Concomitant]
     Indication: MUSCLE SPASMS
  2. DETROL [Concomitant]
     Indication: POLLAKIURIA
  3. TYSABRI [Suspect]
     Indication: MULTIPLE SCLEROSIS
     Route: 042
     Dates: start: 20100122
  4. CITALOPRAM HYDROBROMIDE [Concomitant]
     Indication: ANXIETY
  5. LOESTRIN 1.5/30 [Concomitant]

REACTIONS (2)
  - INTERNATIONAL NORMALISED RATIO DECREASED [None]
  - PULMONARY EMBOLISM [None]
